FAERS Safety Report 21419146 (Version 1)
Quarter: 2022Q4

REPORT INFORMATION
  Report Type: Spontaneous
  Country: DE (occurrence: DE)
  Receive Date: 20221006
  Receipt Date: 20221006
  Transmission Date: 20230113
  Serious: Yes (Hospitalization)
  Sender: FDA-Public Use
  Company Number: DE-ADRED-08122-01

PATIENT
  Age: 95 Year
  Sex: Male
  Weight: 80 kg

DRUGS (10)
  1. ASPIRIN [Suspect]
     Active Substance: ASPIRIN
     Indication: Product used for unknown indication
     Dosage: 100 MILLIGRAM DAILY; 100 MG, 0-1-0-0
     Route: 065
  2. BISOPROLOL [Suspect]
     Active Substance: BISOPROLOL
     Indication: Product used for unknown indication
     Dosage: 2 DOSAGE FORMS DAILY; 2.5 MG, 1-0-1-0
  3. PREGABALIN [Concomitant]
     Active Substance: PREGABALIN
     Indication: Product used for unknown indication
     Dosage: 75 MILLIGRAM DAILY; 75 MG, 1-0-0-0
  4. ESOMEPRAZOLE [Concomitant]
     Active Substance: ESOMEPRAZOLE
     Indication: Product used for unknown indication
     Dosage: 20 MILLIGRAM DAILY; 20 MG, 1-0-0-0
  5. CALCIUM ACETATE [Concomitant]
     Active Substance: CALCIUM ACETATE
     Indication: Product used for unknown indication
     Dosage: 3 DOSAGE FORMS DAILY; 500 MG, 1-1-1-0
  6. PREDNISOLONE [Concomitant]
     Active Substance: PREDNISOLONE
     Indication: Product used for unknown indication
     Route: 065
  7. MAGNESIUM OXIDE [Concomitant]
     Active Substance: MAGNESIUM OXIDE
     Indication: Product used for unknown indication
     Dosage: 150 MILLIGRAM DAILY; 150 MG, 1-0-0-0
  8. TAMSULOSIN [Concomitant]
     Active Substance: TAMSULOSIN
     Indication: Product used for unknown indication
     Dosage: .4 MILLIGRAM DAILY; 0.4 MG, 1-0-0-0
  9. CANDESARTAN [Concomitant]
     Active Substance: CANDESARTAN
     Indication: Product used for unknown indication
     Dosage: .5 DOSAGE FORMS DAILY; 32 MG, 0.5-0-0-0
  10. HYDROXYCHLOROQUINE SULFATE [Concomitant]
     Active Substance: HYDROXYCHLOROQUINE SULFATE
     Indication: Product used for unknown indication
     Dosage: 200 MILLIGRAM DAILY; 200 MG, 1-0-0-0

REACTIONS (16)
  - Loss of consciousness [Unknown]
  - Renal impairment [Unknown]
  - Fracture [Unknown]
  - Thoracic vertebral fracture [Unknown]
  - Electrolyte imbalance [Unknown]
  - Fall [Unknown]
  - Electrocardiogram abnormal [Unknown]
  - Systemic infection [Unknown]
  - Cerebral haemorrhage [Unknown]
  - Lumbar vertebral fracture [Unknown]
  - Fractured skull depressed [Unknown]
  - Thoracic vertebral fracture [Unknown]
  - Wound [Unknown]
  - Cardiac arrest [Unknown]
  - Thoracic vertebral fracture [Unknown]
  - Hypoglycaemia [Unknown]
